FAERS Safety Report 9071281 (Version 1)
Quarter: 2013Q1

REPORT INFORMATION
  Report Type: Spontaneous
  Country: US (occurrence: US)
  Receive Date: 20130206
  Receipt Date: 20130206
  Transmission Date: 20140127
  Serious: No
  Sender: FDA-Public Use
  Company Number: US-ALLERGAN-1210096US

PATIENT
  Age: 86 Year
  Sex: Female

DRUGS (2)
  1. RESTASIS? [Suspect]
     Indication: DRY EYE
     Dosage: UNK UNK, QID
     Route: 047
     Dates: start: 201207, end: 201207
  2. ERYTHROMYCIN OINTMENT [Concomitant]
     Indication: DRY EYE
     Dosage: UNK UNK, QHS
     Dates: start: 201207

REACTIONS (2)
  - Eye irritation [Recovered/Resolved]
  - Eye pain [Recovered/Resolved]
